FAERS Safety Report 4388596-X (Version None)
Quarter: 2004Q2

REPORT INFORMATION
  Report Type: 
  Country: None (occurrence: None)
  Receive Date: 20040624
  Receipt Date: 20040608
  Transmission Date: 20050107
  Serious: Yes (Other)
  Sender: FDA-Public Use
  Company Number: B0335715A

PATIENT
  Age: 31 Year
  Sex: Male
  Weight: 87.8164 kg

DRUGS (7)
  1. NICODERM CQ [Suspect]
     Indication: EX-SMOKER
     Dosage: 14 MG/PER DAY/TRANSDERMAL
     Route: 062
     Dates: start: 20040128
  2. PNEUMOCOCCAL VACCINES INJECTION (PNEUMOCOCCAL VACCINES) [Suspect]
     Indication: IMMUNISATION
     Dosage: SUBCUTANEOUS
     Route: 058
     Dates: start: 20040128, end: 20040128
  3. HUMAN INSULIN [Concomitant]
  4. ASPIRIN [Concomitant]
  5. ATORVASTATIN CALCIUM [Concomitant]
  6. RAMIPRIL [Concomitant]
  7. SILDENAFIL CITRATE [Concomitant]

REACTIONS (3)
  - BLISTER [None]
  - NEOPLASM SKIN [None]
  - PRURITUS [None]
